FAERS Safety Report 15850965 (Version 1)
Quarter: 2019Q1

REPORT INFORMATION
  Report Type: Spontaneous
  Country: ES (occurrence: ES)
  Receive Date: 20190121
  Receipt Date: 20190121
  Transmission Date: 20190417
  Serious: Yes (Other)
  Sender: FDA-Public Use
  Company Number: ES-PCCINC-2019-PEL-000002

PATIENT

DRUGS (6)
  1. FENTANYL. [Suspect]
     Active Substance: FENTANYL
     Dosage: 1.5 MICROGRAM/KILOGRAM
     Route: 042
  2. SEVOFLURANO PIRAMAL {100%} LIQUIDO PARA INHALACION DEL VAPOR [Suspect]
     Active Substance: SEVOFLURANE
     Indication: ANAESTHESIA
     Dosage: 4%
  3. CISATRACURIUM. [Suspect]
     Active Substance: CISATRACURIUM
     Dosage: 0.2 MILLIGRAM/KILOGRAM
     Route: 042
  4. PROPRANOLOL [Concomitant]
     Active Substance: PROPRANOLOL HYDROCHLORIDE
     Indication: HYPERTENSION
     Dosage: UNK
     Route: 065
  5. SEVOFLURANO PIRAMAL {100%} LIQUIDO PARA INHALACION DEL VAPOR [Suspect]
     Active Substance: SEVOFLURANE
     Dosage: 2%
     Route: 065
  6. MIDAZOLAM [Concomitant]
     Active Substance: MIDAZOLAM HYDROCHLORIDE
     Dosage: 3 MILLIGRAM
     Route: 045

REACTIONS (11)
  - Hemiparesis [Recovered/Resolved]
  - Ventricular fibrillation [Recovered/Resolved]
  - Oxygen saturation decreased [Recovered/Resolved]
  - Pulseless electrical activity [Recovered/Resolved]
  - Cardiac arrest [Recovered/Resolved]
  - Electrocardiogram ST segment depression [Recovered/Resolved]
  - Hypoxic-ischaemic encephalopathy [Recovered/Resolved]
  - Hypotonia [Recovered/Resolved]
  - Bradycardia [Recovered/Resolved]
  - Hypotension [Recovered/Resolved]
  - Cardiac dysfunction [Recovered/Resolved]
